FAERS Safety Report 16325141 (Version 1)
Quarter: 2019Q2

REPORT INFORMATION
  Report Type: Spontaneous
  Country: US (occurrence: US)
  Receive Date: 20190516
  Receipt Date: 20190516
  Transmission Date: 20190711
  Serious: Yes (Life-Threatening, Other)
  Sender: FDA-Public Use
  Company Number: None

PATIENT
  Age: 42 Year
  Sex: Male
  Weight: 103.5 kg

DRUGS (12)
  1. ATROVOSTATIN [Concomitant]
  2. LANTUS [Concomitant]
     Active Substance: INSULIN GLARGINE
  3. SOMA [Concomitant]
     Active Substance: CARISOPRODOL
  4. HYDRALAZINE [Concomitant]
     Active Substance: HYDRALAZINE HYDROCHLORIDE
  5. TESTOSTERONE. [Concomitant]
     Active Substance: TESTOSTERONE
  6. VICTOZA [Concomitant]
     Active Substance: LIRAGLUTIDE
  7. LORAZEPAM. [Concomitant]
     Active Substance: LORAZEPAM
  8. AMBIEN [Suspect]
     Active Substance: ZOLPIDEM TARTRATE
     Indication: INSOMNIA
     Dosage: ?          QUANTITY:1 TABLET(S);?
     Route: 048
     Dates: start: 20180101, end: 20190412
  9. PAIN PUMP-MEDTRONIC W DILAUDID [Concomitant]
  10. ATENOLOL. [Concomitant]
     Active Substance: ATENOLOL
  11. BUPIVICAINE [Concomitant]
     Active Substance: BUPIVACAINE
  12. OXYCODONE [Concomitant]
     Active Substance: OXYCODONE

REACTIONS (2)
  - Somnambulism [None]
  - Impaired driving ability [None]

NARRATIVE: CASE EVENT DATE: 20190412
